FAERS Safety Report 8415371-9 (Version None)
Quarter: 2012Q2

REPORT INFORMATION
  Report Type: 
  Country: None (occurrence: None)
  Receive Date: 20120606
  Receipt Date: 20120531
  Transmission Date: 20120825
  Serious: Yes (Disabling)
  Sender: FDA-Public Use
  Company Number: PHHY2011US59900

PATIENT
  Sex: Female

DRUGS (26)
  1. RECLAST [Suspect]
     Indication: OSTEOPOROSIS
     Dosage: 5 MG, ONCE PER YEAR
     Route: 042
     Dates: start: 20110630
  2. POTASSIUM CHLORIDE [Concomitant]
     Dosage: 10 MEQ,DAILY
  3. ASPIRIN [Concomitant]
     Dosage: 81 MG, DAILY
  4. GABAPENTIN [Concomitant]
  5. TOPAMAX [Concomitant]
  6. ENDEROL [Concomitant]
     Indication: MIGRAINE
  7. EFFEXOR [Concomitant]
  8. TIZANIDINE [Concomitant]
  9. PROTONIX [Concomitant]
  10. HYDROCHLOROTHIAZIDE [Concomitant]
  11. PANTOPRAZOLE [Concomitant]
     Dosage: 40 MG, QD
  12. ASCORBIC ACID [Concomitant]
  13. AMINO ACIDS NOS [Concomitant]
  14. VITAMIN E [Concomitant]
     Dosage: 1000 U, UNK
  15. CALCIUM [Concomitant]
  16. CLONAZEPAM [Concomitant]
  17. ZANAFLEX [Concomitant]
     Dosage: 4 MG, QD
  18. VENLAFAXINE [Concomitant]
     Dosage: 150 MG, QD
  19. FLEXERIL [Concomitant]
  20. ARICEPT [Concomitant]
  21. VITAMINS NOS [Concomitant]
  22. TRAMADOL HCL [Concomitant]
     Dosage: 50 MG, BID
  23. CYCLOBENZAPRINE [Concomitant]
  24. CITRUCEL [Concomitant]
  25. SYNTHROID [Concomitant]
     Dosage: 1 DF, PRN
     Route: 048
     Dates: start: 20110614
  26. VITAMIN B COMPLEX CAP [Concomitant]

REACTIONS (15)
  - MEMORY IMPAIRMENT [None]
  - PAIN [None]
  - PAIN IN JAW [None]
  - APATHY [None]
  - FACIAL PAIN [None]
  - INFLUENZA [None]
  - SYNCOPE [None]
  - ARTHRALGIA [None]
  - VISION BLURRED [None]
  - PARAESTHESIA [None]
  - BONE PAIN [None]
  - PYREXIA [None]
  - HEADACHE [None]
  - MALAISE [None]
  - MYALGIA [None]
